FAERS Safety Report 19021291 (Version 1)
Quarter: 2021Q1

REPORT INFORMATION
  Report Type: Report from Study
  Country: US (occurrence: US)
  Receive Date: 20210317
  Receipt Date: 20210317
  Transmission Date: 20210420
  Serious: Yes (Life-Threatening, Other)
  Sender: FDA-Public Use
  Company Number: US-PFIZER INC-2021259915

PATIENT
  Age: 54 Year
  Sex: Male

DRUGS (4)
  1. VALPROIC ACID. [Suspect]
     Active Substance: VALPROIC ACID
     Indication: HYPERTENSION
     Dosage: UNK
  2. QUETIAPINE. [Suspect]
     Active Substance: QUETIAPINE
     Indication: HYPERTENSION
     Dosage: UNK
  3. VERAPAMIL HCL [Suspect]
     Active Substance: VERAPAMIL HYDROCHLORIDE
     Indication: HYPERTENSION
     Dosage: UNK
  4. APIXABAN [Suspect]
     Active Substance: APIXABAN
     Indication: HYPERTENSION

REACTIONS (3)
  - Cardiogenic shock [Unknown]
  - Acute kidney injury [Unknown]
  - Cardiotoxicity [Unknown]
